FAERS Safety Report 25893441 (Version 2)
Quarter: 2025Q4

REPORT INFORMATION
  Report Type: Spontaneous
  Country: US (occurrence: US)
  Receive Date: 20251008
  Receipt Date: 20251120
  Transmission Date: 20260119
  Serious: No
  Sender: NOVARTIS
  Company Number: US-002147023-NVSC2025US150585

PATIENT

DRUGS (2)
  1. COSENTYX [Suspect]
     Active Substance: SECUKINUMAB
     Indication: Hidradenitis
     Dosage: UNK, Q2W
     Route: 065
  2. ACCUTANE [Concomitant]
     Active Substance: ISOTRETINOIN
     Indication: Product used for unknown indication
     Dosage: UNK
     Route: 065

REACTIONS (2)
  - Hidradenitis [Unknown]
  - Condition aggravated [Unknown]
